FAERS Safety Report 20537385 (Version 3)
Quarter: 2022Q1

REPORT INFORMATION
  Report Type: Spontaneous
  Country: IL (occurrence: IL)
  Receive Date: 20220302
  Receipt Date: 20220331
  Transmission Date: 20220423
  Serious: Yes (Hospitalization, Other)
  Sender: FDA-Public Use
  Company Number: IL-ASTELLAS-2022US007426

PATIENT
  Age: 59 Year
  Sex: Female

DRUGS (11)
  1. PADCEV [Suspect]
     Active Substance: ENFORTUMAB VEDOTIN-EJFV
     Indication: Transitional cell carcinoma
     Route: 065
     Dates: start: 20220208, end: 20220215
  2. PADCEV [Suspect]
     Active Substance: ENFORTUMAB VEDOTIN-EJFV
     Indication: Transitional cell carcinoma metastatic
  3. GRANISETRON HYDROCHLORIDE [Suspect]
     Active Substance: GRANISETRON HYDROCHLORIDE
     Indication: Vomiting
     Dosage: UNK UNK, UNKNOWN FREQ.
     Route: 048
     Dates: start: 20220208
  4. GRANISETRON HYDROCHLORIDE [Suspect]
     Active Substance: GRANISETRON HYDROCHLORIDE
     Indication: Nausea
  5. ABSTRAL [Concomitant]
     Active Substance: FENTANYL CITRATE
     Indication: Analgesic therapy
     Dosage: 100 ?G, OTHER (6 TIMES A DAY)
     Route: 060
     Dates: start: 2021
  6. ABSTRAL [Concomitant]
     Active Substance: FENTANYL CITRATE
     Indication: Cancer pain
  7. FENTANYL [Concomitant]
     Active Substance: FENTANYL
     Indication: Analgesic therapy
     Dosage: 12 ?G, OTHER (3 TIMES A WEEK) PATCH
     Route: 062
     Dates: start: 2021
  8. FENTANYL [Concomitant]
     Active Substance: FENTANYL
     Indication: Cancer pain
  9. Oxycod [Concomitant]
     Indication: Analgesic therapy
     Dosage: 5 ML (10 MG), OTHER (6 TIMES A DAY) (STRENGTH: 2 MG/ML)
     Route: 048
     Dates: start: 2021
  10. Normalax [Concomitant]
     Indication: Product used for unknown indication
     Dosage: 17 G, ONCE DAILY (POWDER)
     Route: 048
  11. EUTHYROX [Concomitant]
     Active Substance: LEVOTHYROXINE SODIUM
     Indication: Hypothyroidism
     Route: 048
     Dates: start: 202111

REACTIONS (17)
  - Fungal pharyngitis [Recovered/Resolved]
  - Dermatitis allergic [Not Recovered/Not Resolved]
  - Rash morbilliform [Recovered/Resolved with Sequelae]
  - Neutropenia [Unknown]
  - Viral pharyngitis [Not Recovered/Not Resolved]
  - Genital ulceration [Not Recovered/Not Resolved]
  - Tongue fungal infection [Recovered/Resolved]
  - Herpes simplex [Not Recovered/Not Resolved]
  - Nausea [Not Recovered/Not Resolved]
  - Vomiting [Not Recovered/Not Resolved]
  - Hepatic enzyme increased [Not Recovered/Not Resolved]
  - Diarrhoea [Unknown]
  - Asthenia [Unknown]
  - Dry eye [Not Recovered/Not Resolved]
  - Electrolyte imbalance [Not Recovered/Not Resolved]
  - Skin exfoliation [Unknown]
  - Pruritus [Unknown]

NARRATIVE: CASE EVENT DATE: 20220215
